FAERS Safety Report 23045221 (Version 4)
Quarter: 2024Q1

REPORT INFORMATION
  Report Type: Report from Study
  Country: HK (occurrence: None)
  Receive Date: 20231009
  Receipt Date: 20240227
  Transmission Date: 20240410
  Serious: Yes (Hospitalization)
  Sender: FDA-Public Use
  Company Number: 2023A214377

PATIENT
  Age: 65 Year
  Sex: Male
  Weight: 54.1 kg

DRUGS (20)
  1. CILGAVIMAB\TIXAGEVIMAB [Suspect]
     Active Substance: CILGAVIMAB\TIXAGEVIMAB
     Indication: Product used for unknown indication
     Dosage: 600.0MG ONCE/SINGLE ADMINISTRATION
     Route: 030
     Dates: start: 20221125, end: 20221125
  2. ENTECAVIR [Concomitant]
     Active Substance: ENTECAVIR
     Indication: Chronic hepatitis B
     Dosage: 0.5 MG
     Route: 048
     Dates: start: 20220801
  3. TRAMADOL HCL [Concomitant]
     Active Substance: TRAMADOL HYDROCHLORIDE
     Indication: Unknown schedule of product administration
     Dosage: 50 MG
     Route: 048
     Dates: start: 20211230
  4. TAMSULOSIN HYDROCHLORIDE [Concomitant]
     Active Substance: TAMSULOSIN HYDROCHLORIDE
     Indication: Unknown schedule of product administration
     Dosage: 0.4 MG
     Route: 048
     Dates: start: 20230303, end: 20230818
  5. BISOPROLOL FUMARATE [Concomitant]
     Active Substance: BISOPROLOL FUMARATE
     Indication: Hypertension
     Dosage: AS REQUIRED
     Route: 048
     Dates: start: 20230215, end: 20230805
  6. LACTULOSE [Concomitant]
     Active Substance: LACTULOSE
     Indication: Unknown schedule of product administration
     Dosage: AS REQUIRED
     Route: 048
     Dates: start: 20220722
  7. SENNA [Concomitant]
     Active Substance: SENNA LEAF\SENNOSIDES\SENNOSIDES A AND B
     Indication: Supplementation therapy
     Dosage: AS REQUIRED
     Route: 048
     Dates: start: 20220722
  8. FAKTU [Concomitant]
     Indication: Symptomatic treatment
     Dosage: AS REQUIRED
     Route: 054
     Dates: start: 20230112
  9. EMPAGLIFLOZIN [Concomitant]
     Active Substance: EMPAGLIFLOZIN
     Indication: Symptomatic treatment
     Dosage: 10 MG
     Route: 048
     Dates: start: 20230223
  10. NITROGLYCERIN [Concomitant]
     Active Substance: NITROGLYCERIN
     Indication: Coronary artery disease
     Dosage: 500 MCG AS NEEDED
     Route: 060
     Dates: start: 20230221
  11. DIGOXIN [Concomitant]
     Active Substance: DIGOXIN
     Indication: Atrial fibrillation
     Dosage: AS NEEDED
     Route: 048
     Dates: start: 20230215
  12. CHLORPHENIRAMINE MALEATE [Concomitant]
     Active Substance: CHLORPHENIRAMINE MALEATE
     Indication: Symptomatic treatment
     Dosage: 4 MG
     Route: 048
     Dates: start: 20230210
  13. FEXOFENADINE HYDROCHLORIDE\PSEUDOEPHEDRINE HYDROCHLORIDE [Concomitant]
     Active Substance: FEXOFENADINE HYDROCHLORIDE\PSEUDOEPHEDRINE HYDROCHLORIDE
     Indication: Symptomatic treatment
     Dosage: 1 TABLET
     Route: 048
     Dates: start: 20220708
  14. ACYCLOVIR [Concomitant]
     Active Substance: ACYCLOVIR
     Indication: Prophylaxis
     Dosage: 200 MG
     Route: 048
     Dates: start: 20220801
  15. CALCIUM CARBONATE\VITAMIN D [Concomitant]
     Active Substance: CALCIUM CARBONATE\VITAMIN D
     Indication: Supplementation therapy
     Dosage: 1000 MG
     Route: 048
     Dates: start: 20220210
  16. CLOTRIMAZOLE [Concomitant]
     Active Substance: CLOTRIMAZOLE
     Indication: Prophylaxis
     Dosage: AS NEEDED
     Route: 061
     Dates: start: 20230222
  17. ACETAMINOPHEN [Concomitant]
     Active Substance: ACETAMINOPHEN
     Indication: Symptomatic treatment
     Dosage: AS NEEDED
     Route: 048
     Dates: start: 20210708
  18. EDOXABAN TOSYLATE [Concomitant]
     Active Substance: EDOXABAN TOSYLATE
     Indication: Cardiovascular disorder
     Dosage: 30 MG
     Route: 048
     Dates: start: 20230507
  19. ZOPICLONE [Concomitant]
     Active Substance: ZOPICLONE
     Indication: Symptomatic treatment
     Dosage: 7.5 MG
     Route: 048
     Dates: start: 20230112
  20. FUROSEMIDE [Concomitant]
     Active Substance: FUROSEMIDE
     Indication: Hypervolaemia
     Dosage: AS NEEDED
     Route: 048
     Dates: start: 20130826

REACTIONS (3)
  - Dizziness [Recovered/Resolved]
  - Cardiac failure congestive [Not Recovered/Not Resolved]
  - Anaemia [Recovered/Resolved]

NARRATIVE: CASE EVENT DATE: 20230516
